FAERS Safety Report 18546793 (Version 4)
Quarter: 2022Q1

REPORT INFORMATION
  Report Type: Report from Study
  Country: US (occurrence: US)
  Receive Date: 20201125
  Receipt Date: 20220120
  Transmission Date: 20220423
  Serious: Yes (Other)
  Sender: FDA-Public Use
  Company Number: US-SHIRE-US202032799

PATIENT
  Sex: Female

DRUGS (1)
  1. HUMAN IMMUNOGLOBULIN G\HYALURONIDASE RECOMBINANT HUMAN [Suspect]
     Active Substance: HUMAN IMMUNOGLOBULIN G\HYALURONIDASE RECOMBINANT HUMAN
     Indication: Immunodeficiency common variable
     Dosage: UNK
     Route: 065

REACTIONS (13)
  - Pneumonia [Unknown]
  - Kidney infection [Unknown]
  - Diabetes mellitus inadequate control [Unknown]
  - Bronchitis [Unknown]
  - Illness [Unknown]
  - Pyrexia [Unknown]
  - Nausea [Unknown]
  - Influenza like illness [Unknown]
  - Infusion site pain [Unknown]
  - Malaise [Unknown]
  - Pain [Unknown]
  - Allergy to vaccine [Unknown]
  - COVID-19 [Unknown]
